FAERS Safety Report 15676142 (Version 1)
Quarter: 2018Q4

REPORT INFORMATION
  Report Type: Report from Study
  Country: US (occurrence: US)
  Receive Date: 20181130
  Receipt Date: 20181130
  Transmission Date: 20190205
  Serious: Yes (Death)
  Sender: FDA-Public Use
  Company Number: US-ASTRAZENECA-2018SF57017

PATIENT
  Age: 26477 Day
  Sex: Male

DRUGS (24)
  1. OMEPRAZOLE. [Suspect]
     Active Substance: OMEPRAZOLE
     Route: 048
  2. MULTIVITAMIN [Concomitant]
     Active Substance: VITAMINS
  3. VITAMIN D [Concomitant]
     Active Substance: CHOLECALCIFEROL
  4. GLUCOSAMINE [Concomitant]
     Active Substance: GLUCOSAMINE
  5. POTASSIUM [Concomitant]
     Active Substance: POTASSIUM
  6. METOPROLOL TARTRATE. [Suspect]
     Active Substance: METOPROLOL TARTRATE
     Route: 048
  7. DIAZEPAM. [Concomitant]
     Active Substance: DIAZEPAM
  8. ATORVASTATIN [Concomitant]
     Active Substance: ATORVASTATIN
  9. ETOPOSIDE. [Concomitant]
     Active Substance: ETOPOSIDE
  10. EMEND [Concomitant]
     Active Substance: APREPITANT
  11. DOXAZOSIN [Concomitant]
     Active Substance: DOXAZOSIN\DOXAZOSIN MESYLATE
  12. LEVOTHYROXINE. [Concomitant]
     Active Substance: LEVOTHYROXINE
  13. DUTASTERIDE. [Concomitant]
     Active Substance: DUTASTERIDE
  14. BENZONATATE. [Concomitant]
     Active Substance: BENZONATATE
  15. DEXAMETHASONE. [Concomitant]
     Active Substance: DEXAMETHASONE
  16. IMFINZI [Suspect]
     Active Substance: DURVALUMAB
     Route: 042
  17. TAGRISSO [Suspect]
     Active Substance: OSIMERTINIB
     Indication: LUNG CARCINOMA CELL TYPE UNSPECIFIED STAGE 0
     Route: 048
     Dates: start: 20180605
  18. CISPLATIN. [Concomitant]
     Active Substance: CISPLATIN
  19. LIDOCAINE. [Concomitant]
     Active Substance: LIDOCAINE
  20. MAGNESIUM [Concomitant]
     Active Substance: MAGNESIUM
  21. FISH OIL [Concomitant]
     Active Substance: FISH OIL
  22. PAROXETINE. [Concomitant]
     Active Substance: PAROXETINE
  23. DIGOXIN. [Concomitant]
     Active Substance: DIGOXIN
  24. ZOFRAN [Concomitant]
     Active Substance: ONDANSETRON HYDROCHLORIDE

REACTIONS (1)
  - Death [Fatal]

NARRATIVE: CASE EVENT DATE: 20181112
